FAERS Safety Report 7002884-X (Version None)
Quarter: 2010Q3

REPORT INFORMATION
  Report Type: 
  Country: None (occurrence: None)
  Receive Date: 20100920
  Receipt Date: 20070515
  Transmission Date: 20110219
  Serious: Yes (Other)
  Sender: FDA-Public Use
  Company Number: US-ASTRAZENECA-2006UW11209

PATIENT
  Age: 15278 Day
  Sex: Female
  Weight: 138.8 kg

DRUGS (8)
  1. SEROQUEL [Suspect]
     Indication: MENTAL DISORDER
     Route: 048
     Dates: start: 20020101
  2. SEROQUEL [Suspect]
     Dosage: 25-300 MG
     Route: 048
     Dates: start: 20020403
  3. ABILIFY [Concomitant]
     Dates: start: 20060911, end: 20061101
  4. GEODON [Concomitant]
     Dates: start: 20060101
  5. RISPERDAL [Concomitant]
     Dates: start: 20060101
  6. DEPAKOTE [Concomitant]
     Dosage: 250-1000 MG
     Route: 048
     Dates: start: 20020412
  7. PAXIL [Concomitant]
     Dosage: 10-40 MG
     Route: 048
     Dates: start: 20010809
  8. SYNTHROID [Concomitant]
     Dosage: 112.5-150 MCG
     Route: 048
     Dates: start: 20010725

REACTIONS (6)
  - DIABETES MELLITUS [None]
  - DIABETES MELLITUS INADEQUATE CONTROL [None]
  - HYPERGLYCAEMIA [None]
  - OBESITY [None]
  - TYPE 1 DIABETES MELLITUS [None]
  - TYPE 2 DIABETES MELLITUS [None]
